FAERS Safety Report 8113358-7 (Version None)
Quarter: 2012Q1

REPORT INFORMATION
  Report Type: 
  Country: None (occurrence: None)
  Receive Date: 20120203
  Receipt Date: 20120201
  Transmission Date: 20120608
  Serious: Yes (Other)
  Sender: FDA-Public Use
  Company Number: PHHY2011CN112536

PATIENT
  Age: 70 Year
  Sex: Female

DRUGS (3)
  1. CALCIUM [Concomitant]
  2. ZOLEDRONOC ACID [Suspect]
     Indication: OSTEOPOROSIS
     Dosage: 5 MG, UNK
     Route: 042
     Dates: start: 20111216
  3. MELOXICAM [Concomitant]
     Dosage: UNK UKN, UNK

REACTIONS (7)
  - HEPATIC FUNCTION ABNORMAL [None]
  - PYREXIA [None]
  - HEPATITIS TOXIC [None]
  - EPIGASTRIC DISCOMFORT [None]
  - DECREASED APPETITE [None]
  - ASTHENIA [None]
  - LIVER INJURY [None]
